FAERS Safety Report 7200069-5 (Version None)
Quarter: 2010Q4

REPORT INFORMATION
  Report Type: 
  Country: None (occurrence: None)
  Receive Date: 20101214
  Receipt Date: 20101130
  Transmission Date: 20110411
  Serious: Yes (Other)
  Sender: FDA-Public Use
  Company Number: CH-DEXPHARM-20101944

PATIENT
  Age: 73 Year
  Sex: Female

DRUGS (10)
  1. LANSOPRAZOLE [Suspect]
     Indication: GASTROOESOPHAGEAL REFLUX DISEASE
     Dosage: 15 MG MILLIGRAM(S) SEP. DOSAGES/INTERVAL: 1 IN 1 DAY
  2. OMEPRAZOLE [Suspect]
  3. AMILIORIDE [Concomitant]
  4. CALCIUM [Concomitant]
  5. CHOLECALCIFEROL [Concomitant]
  6. CISAPRIDE [Concomitant]
  7. HYDROCHLOROTHIAZIDE [Concomitant]
  8. PHENPROCOUMONE [Concomitant]
  9. PRAVASTATIN [Concomitant]
  10. PREDNISONE [Concomitant]

REACTIONS (18)
  - ANTI-HBC ANTIBODY POSITIVE [None]
  - ANTI-HBE ANTIBODY POSITIVE [None]
  - ANTI-HBS ANTIBODY POSITIVE [None]
  - BLOOD CREATININE INCREASED [None]
  - BLOOD PRESSURE SYSTOLIC INCREASED [None]
  - DECREASED APPETITE [None]
  - FATIGUE [None]
  - GLOMERULONEPHRITIS ACUTE [None]
  - HAEMATURIA [None]
  - HAEMOGLOBIN DECREASED [None]
  - HYPERSENSITIVITY [None]
  - MALAISE [None]
  - NAUSEA [None]
  - OEDEMA PERIPHERAL [None]
  - PROTEIN URINE PRESENT [None]
  - REFUSAL OF TREATMENT BY PATIENT [None]
  - URINARY SEDIMENT PRESENT [None]
  - VASCULITIS [None]
